FAERS Safety Report 13452369 (Version 1)
Quarter: 2017Q2

REPORT INFORMATION
  Report Type: Spontaneous
  Country: FR (occurrence: FR)
  Receive Date: 20170418
  Receipt Date: 20170418
  Transmission Date: 20170830
  Serious: Yes (Other)
  Sender: FDA-Public Use
  Company Number: FR-ACORDA-ACO_135132_2017

PATIENT
  Age: 45 Year
  Sex: Female
  Weight: 52 kg

DRUGS (2)
  1. QUTENZA [Suspect]
     Active Substance: CAPSAICIN
     Indication: NEURALGIA
     Dosage: UNK UNK, UNKNOWN FREQ. (FIRST APPLICATION)
     Route: 003
     Dates: start: 201611, end: 201611
  2. QUTENZA [Suspect]
     Active Substance: CAPSAICIN
     Dosage: UNK UNK, UNKNOWN FREQ.(SECOND APPLICATION)
     Route: 003
     Dates: start: 20170215, end: 20170215

REACTIONS (8)
  - Erythema [Recovering/Resolving]
  - Oedema [Recovering/Resolving]
  - Insomnia [Unknown]
  - Burning sensation [Recovering/Resolving]
  - Feeling hot [Unknown]
  - Complex regional pain syndrome [Recovering/Resolving]
  - Erythema [Unknown]
  - Pain [Recovering/Resolving]

NARRATIVE: CASE EVENT DATE: 20170314
